FAERS Safety Report 17055017 (Version 1)
Quarter: 2019Q4

REPORT INFORMATION
  Report Type: Report from Study
  Country: US (occurrence: US)
  Receive Date: 20191120
  Receipt Date: 20191120
  Transmission Date: 20200122
  Serious: Yes (Other)
  Sender: FDA-Public Use
  Company Number: NVSC2019US040623

PATIENT
  Age: 42 Year
  Sex: Female

DRUGS (1)
  1. GILENYA [Suspect]
     Active Substance: FINGOLIMOD HYDROCHLORIDE
     Indication: PRODUCT USED FOR UNKNOWN INDICATION
     Dosage: 0.5 MG, QD
     Route: 048
     Dates: start: 20170601

REACTIONS (5)
  - White blood cell count decreased [Unknown]
  - Palpitations [Unknown]
  - Concussion [Unknown]
  - Cardiac flutter [Unknown]
  - Extrasystoles [Unknown]

NARRATIVE: CASE EVENT DATE: 20190919
